FAERS Safety Report 22030246 (Version 1)
Quarter: 2023Q1

REPORT INFORMATION
  Report Type: Spontaneous
  Country: US (occurrence: US)
  Receive Date: 20230223
  Receipt Date: 20230223
  Transmission Date: 20230418
  Serious: No
  Sender: FDA-Public Use
  Company Number: US-PRIMUS-2022-US-012616

PATIENT
  Age: 71 Year
  Sex: Female

DRUGS (1)
  1. SERNIVO [Suspect]
     Active Substance: BETAMETHASONE DIPROPIONATE
     Indication: Pruritus
     Dosage: APPLY TO ITCHY AREAS 2 TO 4 TIMES DAILY UNTIL RESOLVED
     Route: 061

REACTIONS (1)
  - Application site pain [Not Recovered/Not Resolved]
